FAERS Safety Report 10410504 (Version 2)
Quarter: 2014Q3

REPORT INFORMATION
  Report Type: Report from Study
  Country: US (occurrence: US)
  Receive Date: 20140826
  Receipt Date: 20140911
  Transmission Date: 20150326
  Serious: Yes (Death, Hospitalization)
  Sender: FDA-Public Use
  Company Number: GXBR2014US001893

PATIENT
  Age: 61 Year
  Sex: Male
  Weight: 57.14 kg

DRUGS (4)
  1. ENOXAPARIN SODIUM. [Suspect]
     Active Substance: ENOXAPARIN SODIUM
     Indication: EMBOLISM VENOUS
     Dosage: 90 MG, QD
     Route: 058
     Dates: start: 20140620
  2. REMERON [Concomitant]
     Active Substance: MIRTAZAPINE
     Indication: AFFECTIVE DISORDER
     Dosage: 30 MG, QHS
     Dates: start: 20140618
  3. VICODIN [Concomitant]
     Active Substance: ACETAMINOPHEN\HYDROCODONE BITARTRATE
     Indication: PAIN
     Dosage: 5MG HYDROCODONE 325MG PARACETAMOL, Q6H
     Dates: start: 20140522
  4. REMERON [Concomitant]
     Active Substance: MIRTAZAPINE
     Indication: APPETITE DISORDER

REACTIONS (8)
  - Dyspnoea [Fatal]
  - Cardiac arrest [Fatal]
  - Pulseless electrical activity [Fatal]
  - Asthenia [Unknown]
  - Dysphagia [Unknown]
  - Unresponsive to stimuli [Fatal]
  - Hypotension [Unknown]
  - Pneumonia [Fatal]

NARRATIVE: CASE EVENT DATE: 20140731
